FAERS Safety Report 14716709 (Version 1)
Quarter: 2018Q2

REPORT INFORMATION
  Report Type: Spontaneous
  Country: US (occurrence: US)
  Receive Date: 20180404
  Receipt Date: 20180404
  Transmission Date: 20180711
  Serious: Yes (Hospitalization, Other)
  Sender: FDA-Public Use
  Company Number: US-PFIZER INC-2018132345

PATIENT
  Age: 15 Year
  Sex: Female

DRUGS (2)
  1. CELLCEPT [Concomitant]
     Active Substance: MYCOPHENOLATE MOFETIL\MYCOPHENOLATE MOFETIL HYDROCHLORIDE
  2. RAPAMUNE [Suspect]
     Active Substance: SIROLIMUS
     Indication: RENAL TRANSPLANT
     Dosage: 6 MG, DAILY
     Dates: start: 2005, end: 2017

REACTIONS (12)
  - Infection [Recovered/Resolved with Sequelae]
  - Neuropathy peripheral [Unknown]
  - Foot fracture [Recovered/Resolved]
  - Overdose [Unknown]
  - Behcet^s syndrome [Unknown]
  - Thermal burn [Unknown]
  - Impaired healing [Recovered/Resolved]
  - Skin lesion [Unknown]
  - Peripheral swelling [Unknown]
  - Pain [Unknown]
  - Memory impairment [Unknown]
  - Blindness [Unknown]

NARRATIVE: CASE EVENT DATE: 2005
